FAERS Safety Report 11383915 (Version 3)
Quarter: 2017Q4

REPORT INFORMATION
  Report Type: Spontaneous
  Country: US (occurrence: US)
  Receive Date: 20150815
  Receipt Date: 20171003
  Transmission Date: 20180320
  Serious: No
  Sender: FDA-Public Use
  Company Number: US-ASTRAZENECA-2015SE76564

PATIENT
  Sex: Male
  Weight: 127 kg

DRUGS (2)
  1. TUDORZA PRESSAIR [Suspect]
     Active Substance: ACLIDINIUM BROMIDE
     Indication: CHRONIC OBSTRUCTIVE PULMONARY DISEASE
     Dosage: 400UG, ONE PUFF, TWO TIMES A DAY
     Route: 055
     Dates: start: 20150715
  2. SYMBICORT [Suspect]
     Active Substance: BUDESONIDE\FORMOTEROL FUMARATE DIHYDRATE
     Indication: CHRONIC OBSTRUCTIVE PULMONARY DISEASE
     Route: 055

REACTIONS (6)
  - Dry mouth [Unknown]
  - Dyspnoea [Unknown]
  - Gait disturbance [Not Recovered/Not Resolved]
  - Device issue [Unknown]
  - Adverse drug reaction [Unknown]
  - Drug ineffective [Unknown]
